FAERS Safety Report 20440467 (Version 5)
Quarter: 2022Q2

REPORT INFORMATION
  Report Type: Report from Study
  Country: CL (occurrence: CL)
  Receive Date: 20220207
  Receipt Date: 20220422
  Transmission Date: 20220721
  Serious: Yes (Hospitalization, Other)
  Sender: FDA-Public Use
  Company Number: CL-BRISTOL-MYERS SQUIBB COMPANY-BMS-2022-017612

PATIENT
  Age: 71 Year
  Sex: Male
  Weight: 73 kg

DRUGS (10)
  1. LINRODOSTAT MESYLATE [Suspect]
     Active Substance: LINRODOSTAT MESYLATE
     Indication: Bladder cancer
     Dosage: 1 DF: 1 TABLET
     Route: 048
     Dates: start: 20201105, end: 20211228
  2. NIVOLUMAB [Suspect]
     Active Substance: NIVOLUMAB
     Indication: Bladder cancer
     Route: 042
     Dates: start: 20201105, end: 20211223
  3. CISPLATIN [Suspect]
     Active Substance: CISPLATIN
     Indication: Bladder cancer
     Route: 042
     Dates: start: 20201105, end: 20210107
  4. GEMCITABINE HYDROCHLORIDE [Suspect]
     Active Substance: GEMCITABINE HYDROCHLORIDE
     Indication: Bladder cancer
     Route: 042
     Dates: start: 20201105, end: 20210121
  5. ENALAPRIL [Concomitant]
     Active Substance: ENALAPRIL
     Indication: Product used for unknown indication
     Route: 048
     Dates: start: 2000
  6. KETOROLAC [Concomitant]
     Active Substance: KETOROLAC TROMETHAMINE
     Indication: Product used for unknown indication
     Route: 048
     Dates: start: 20210803
  7. COVID-19 VACCINE [Concomitant]
     Indication: Prophylaxis
     Dosage: SINOVAC
     Route: 030
     Dates: start: 20210215
  8. COVID-19 VACCINE [Concomitant]
     Dosage: UNK?SINOVAC
     Route: 030
     Dates: start: 20210317
  9. COVID-19 VACCINE [Concomitant]
     Dosage: UNK?PFIZER
     Route: 030
     Dates: start: 20210818
  10. CIPROFLOXACIN [Concomitant]
     Active Substance: CIPROFLOXACIN
     Indication: Product used for unknown indication
     Route: 048
     Dates: start: 20211221, end: 20211230

REACTIONS (1)
  - Gastrointestinal haemorrhage [Recovered/Resolved]

NARRATIVE: CASE EVENT DATE: 20211228
